FAERS Safety Report 11153419 (Version 9)
Quarter: 2016Q2

REPORT INFORMATION
  Report Type: Report from Study
  Country: CO (occurrence: CO)
  Receive Date: 20150602
  Receipt Date: 20160628
  Transmission Date: 20160815
  Serious: Yes (Hospitalization, Other)
  Sender: FDA-Public Use
  Company Number: PHHY2015CO065875

PATIENT
  Age: 69 Year
  Sex: Male
  Weight: 59 kg

DRUGS (5)
  1. CARDIAZOL [Concomitant]
     Indication: ANEURYSM
     Dosage: 1 DF, Q12H
     Route: 065
  2. LORATADINE. [Concomitant]
     Active Substance: LORATADINE
     Indication: PRODUCT USED FOR UNKNOWN INDICATION
     Route: 065
  3. TASIGNA [Suspect]
     Active Substance: NILOTINIB
     Indication: CHRONIC MYELOID LEUKAEMIA
     Dosage: 2 DF, BID (2 IN THE MORNING AND 2 AT NIGHT)
     Route: 048
     Dates: start: 20130629
  4. TASIGNA [Suspect]
     Active Substance: NILOTINIB
     Dosage: 1 DF, BID (1 IN THE MORNING AND 1 AT NIGHT)
     Route: 048
     Dates: end: 20160523
  5. HIDROCORTISON [Concomitant]
     Active Substance: HYDROCORTISONE
     Indication: PRODUCT USED FOR UNKNOWN INDICATION
     Route: 065

REACTIONS (17)
  - Dyspepsia [Unknown]
  - Drug intolerance [Unknown]
  - Rash [Recovered/Resolved]
  - Abdominal pain [Unknown]
  - Chronic gastritis [Recovered/Resolved]
  - Leukaemia recurrent [Unknown]
  - Diarrhoea [Recovered/Resolved]
  - Pain [Recovering/Resolving]
  - Aortic aneurysm [Unknown]
  - Abdominal discomfort [Recovered/Resolved]
  - Platelet count decreased [Unknown]
  - Gastritis [Recovered/Resolved]
  - Vomiting [Unknown]
  - Skin hypertrophy [Recovered/Resolved]
  - Weight decreased [Unknown]
  - Cytogenetic analysis abnormal [Unknown]
  - Decreased appetite [Unknown]

NARRATIVE: CASE EVENT DATE: 20150510
